FAERS Safety Report 9543909 (Version 1)
Quarter: 2013Q2

REPORT INFORMATION
  Report Type: Spontaneous
  Country: US (occurrence: None)
  Receive Date: 20130524
  Receipt Date: 20130524
  Transmission Date: 20140414
  Serious: Yes (Other)
  Sender: FDA-Public Use
  Company Number: PHEH2013US001131

PATIENT
  Age: 35 Year
  Sex: Female

DRUGS (2)
  1. GILENYA (FINGOLIMOD) CAPSULE, 0.5 MG [Suspect]
     Indication: MULTIPLE SCLEROSIS
     Route: 048
     Dates: start: 201205
  2. FLUOXETINE (FLUOXETINE) [Concomitant]

REACTIONS (3)
  - Fungal infection [None]
  - Dizziness [None]
  - Headache [None]
